FAERS Safety Report 8803707 (Version 2)
Quarter: 2012Q4

REPORT INFORMATION
  Report Type: 
  Country: GR (occurrence: GR)
  Receive Date: 20120924
  Receipt Date: 20121016
  Transmission Date: 20130627
  Serious: Yes (Hospitalization)
  Sender: FDA-Public Use
  Company Number: GR-JNJFOC-20120907041

PATIENT
  Age: 66 Year
  Sex: Male

DRUGS (2)
  1. REMICADE [Suspect]
     Indication: PSORIASIS
     Dosage: start date: beginning of 2012
     Route: 042
     Dates: start: 2012
  2. REMICADE [Suspect]
     Indication: PSORIASIS
     Dosage: 6th infusion
     Route: 042
     Dates: start: 20120803

REACTIONS (2)
  - Respiratory tract infection bacterial [Recovered/Resolved]
  - Respiratory failure [Recovered/Resolved]
